FAERS Safety Report 19413860 (Version 2)
Quarter: 2021Q2

REPORT INFORMATION
  Report Type: Spontaneous
  Country: US (occurrence: US)
  Receive Date: 20210614
  Receipt Date: 20210625
  Transmission Date: 20210717
  Serious: Yes (Hospitalization, Other)
  Sender: FDA-Public Use
  Company Number: US-JAZZ-2021-US-010536

PATIENT
  Age: 65 Year
  Sex: Female

DRUGS (11)
  1. FUROSEMIDE. [Concomitant]
     Active Substance: FUROSEMIDE
  2. APIXABAN [Concomitant]
     Active Substance: APIXABAN
  3. AMLODIPINE [Concomitant]
     Active Substance: AMLODIPINE BESYLATE
  4. BACLOFEN. [Suspect]
     Active Substance: BACLOFEN
     Indication: PRODUCT USED FOR UNKNOWN INDICATION
     Route: 048
  5. METOPROLOL. [Concomitant]
     Active Substance: METOPROLOL
  6. ISORDIL [Concomitant]
     Active Substance: ISOSORBIDE DINITRATE
  7. ATORVASTATIN [Concomitant]
     Active Substance: ATORVASTATIN
  8. XYREM [Suspect]
     Active Substance: SODIUM OXYBATE
     Indication: PRODUCT USED FOR UNKNOWN INDICATION
     Dosage: UNKNOWN FREQUENCY AND UNKNOWN FREQUENCY
     Route: 048
  9. GABAPENTIN. [Suspect]
     Active Substance: GABAPENTIN
     Indication: PRODUCT USED FOR UNKNOWN INDICATION
     Route: 048
  10. DIGOXIN. [Concomitant]
     Active Substance: DIGOXIN
  11. INSULIN [Concomitant]
     Active Substance: INSULIN NOS

REACTIONS (11)
  - Atrial fibrillation [Recovering/Resolving]
  - Pneumothorax [Recovered/Resolved]
  - Hyperglycaemia [Unknown]
  - Secretion discharge [Unknown]
  - Acute respiratory failure [Unknown]
  - Depressed level of consciousness [Unknown]
  - Hypoglycaemia [Unknown]
  - Respiratory depression [Unknown]
  - Tachycardia [Unknown]
  - Ventricular fibrillation [Unknown]
  - Herpes zoster meningoencephalitis [Unknown]

NARRATIVE: CASE EVENT DATE: 202105
